FAERS Safety Report 8747347 (Version 2)
Quarter: 2014Q1

REPORT INFORMATION
  Report Type: Spontaneous
  Country: US (occurrence: US)
  Receive Date: 20120827
  Receipt Date: 20140314
  Transmission Date: 20141002
  Serious: No
  Sender: FDA-Public Use
  Company Number: US-B.I. PHARMACEUTICALS,INC./RIDGEFIELD-2012-BP-20210BP

PATIENT
  Age: 69 Year
  Sex: Female

DRUGS (4)
  1. PRADAXA [Suspect]
     Indication: ATRIAL FIBRILLATION
     Dosage: 300 MG
     Route: 048
     Dates: start: 2011
  2. PRADAXA [Suspect]
     Dosage: 150 MG
     Route: 048
  3. LOPRESSOR [Concomitant]
     Indication: ATRIAL FIBRILLATION
     Route: 048
  4. SYNTHROID [Concomitant]
     Route: 048

REACTIONS (4)
  - Erythema [Not Recovered/Not Resolved]
  - Erythema of eyelid [Not Recovered/Not Resolved]
  - Rosacea [Not Recovered/Not Resolved]
  - Skin haemorrhage [Not Recovered/Not Resolved]
